FAERS Safety Report 16470359 (Version 1)
Quarter: 2019Q2

REPORT INFORMATION
  Report Type: Spontaneous
  Country: US (occurrence: US)
  Receive Date: 20190624
  Receipt Date: 20190624
  Transmission Date: 20190711
  Serious: No
  Sender: FDA-Public Use
  Company Number: US-TEVA-2019-US-1060435

PATIENT
  Sex: Female

DRUGS (3)
  1. ACTAVIS CLONAZEPAM [Suspect]
     Active Substance: CLONAZEPAM
     Indication: INSOMNIA
  2. ACTAVIS CLONAZEPAM [Suspect]
     Active Substance: CLONAZEPAM
     Indication: ANXIETY
  3. VENLAFAXINE [Concomitant]
     Active Substance: VENLAFAXINE HYDROCHLORIDE

REACTIONS (2)
  - Drug ineffective [Unknown]
  - Product substitution issue [Unknown]
